FAERS Safety Report 10786767 (Version 5)
Quarter: 2015Q2

REPORT INFORMATION
  Report Type: Report from Study
  Country: BR (occurrence: BR)
  Receive Date: 20150211
  Receipt Date: 20150616
  Transmission Date: 20150821
  Serious: Yes (Hospitalization)
  Sender: FDA-Public Use
  Company Number: BR-BIOGENIDEC-2015BI013826

PATIENT
  Age: 51 Year
  Sex: Female

DRUGS (7)
  1. PRESSAT [Concomitant]
     Active Substance: AMLODIPINE BESYLATE
  2. DORENE (PREGABALINE) [Concomitant]
  3. CARBAMAZEPINE. [Concomitant]
     Active Substance: CARBAMAZEPINE
  4. ATENOLOL. [Concomitant]
     Active Substance: ATENOLOL
     Indication: HYPERTENSION
  5. TYSABRI [Suspect]
     Active Substance: NATALIZUMAB
     Indication: MULTIPLE SCLEROSIS
     Route: 042
     Dates: start: 20141231
  6. AMITRIPTYLINE [Concomitant]
     Active Substance: AMITRIPTYLINE
  7. LOSARTAN [Concomitant]
     Active Substance: LOSARTAN

REACTIONS (14)
  - Dysstasia [Recovered/Resolved]
  - Multiple sclerosis relapse [Not Recovered/Not Resolved]
  - Pain [Unknown]
  - Bladder dysfunction [Not Recovered/Not Resolved]
  - Mobility decreased [Recovered/Resolved]
  - Dyspnoea [Unknown]
  - Motor dysfunction [Unknown]
  - Functional gastrointestinal disorder [Not Recovered/Not Resolved]
  - Dizziness [Recovered/Resolved]
  - Speech disorder [Unknown]
  - Gastric disorder [Not Recovered/Not Resolved]
  - Nuclear magnetic resonance imaging abnormal [Not Recovered/Not Resolved]
  - Memory impairment [Unknown]
  - Fatigue [Unknown]

NARRATIVE: CASE EVENT DATE: 201412
